FAERS Safety Report 25442864 (Version 1)
Quarter: 2025Q2

REPORT INFORMATION
  Report Type: Spontaneous
  Country: US (occurrence: US)
  Receive Date: 20250617
  Receipt Date: 20250617
  Transmission Date: 20250717
  Serious: Yes (Death, Hospitalization, Other)
  Sender: UNICHEM
  Company Number: US-UNICHEM LABORATORIES LIMITED-UNI-2025-US-002502

PATIENT

DRUGS (1)
  1. ZONISAMIDE [Suspect]
     Active Substance: ZONISAMIDE
     Indication: Weight decreased
     Route: 065

REACTIONS (4)
  - Drug-induced liver injury [Fatal]
  - Vanishing bile duct syndrome [Fatal]
  - Drug reaction with eosinophilia and systemic symptoms [Fatal]
  - Off label use [Unknown]
